FAERS Safety Report 11320129 (Version 1)
Quarter: 2015Q3

REPORT INFORMATION
  Report Type: Spontaneous
  Country: US (occurrence: None)
  Receive Date: 20150728
  Receipt Date: 20150728
  Transmission Date: 20151125
  Serious: Yes (Hospitalization)
  Sender: FDA-Public Use
  Company Number: None

PATIENT
  Age: 52 Year
  Sex: Male
  Weight: 100.1 kg

DRUGS (2)
  1. FUROSEMIDE. [Suspect]
     Active Substance: FUROSEMIDE
     Indication: INFECTION
     Route: 048
     Dates: start: 20120508, end: 20141105
  2. SULFAMETHOXAZOLE/TRIMETHOPRIM [Suspect]
     Active Substance: SULFAMETHOXAZOLE\TRIMETHOPRIM
     Indication: HYPERTENSION
     Dosage: 800/160 MG
     Route: 048
     Dates: start: 20141008, end: 20141105

REACTIONS (2)
  - Prostate infection [None]
  - Acute kidney injury [None]

NARRATIVE: CASE EVENT DATE: 20141105
